FAERS Safety Report 9994804 (Version 1)
Quarter: 2014Q1

REPORT INFORMATION
  Report Type: Spontaneous
  Country: US (occurrence: None)
  Receive Date: 20140307
  Receipt Date: 20140307
  Transmission Date: 20141002
  Serious: Yes (Other)
  Sender: FDA-Public Use
  Company Number: None

PATIENT
  Age: 55 Year
  Sex: Female
  Weight: 90.72 kg

DRUGS (1)
  1. ELIQUIS [Suspect]
     Indication: HYPOAESTHESIA
     Route: 048
     Dates: start: 20140224, end: 20140306

REACTIONS (7)
  - Dizziness [None]
  - Nausea [None]
  - Headache [None]
  - Fatigue [None]
  - Lethargy [None]
  - Dizziness [None]
  - Feeling cold [None]
